FAERS Safety Report 6419730-5 (Version None)
Quarter: 2009Q4

REPORT INFORMATION
  Report Type: 
  Country: None (occurrence: None)
  Receive Date: 20091029
  Receipt Date: 20091022
  Transmission Date: 20100525
  Serious: Yes (Other)
  Sender: FDA-Public Use
  Company Number: US-AVENTIS-200919520US

PATIENT
  Age: 57 Year
  Sex: Female
  Weight: 59 kg

DRUGS (1)
  1. APIDRA [Suspect]
     Dosage: DOSE: VIA PUMP, APPROXIMATELY 11.3 UNITS DAILY
     Route: 058
     Dates: start: 20091001, end: 20091022

REACTIONS (14)
  - CONTUSION [None]
  - EYE DISORDER [None]
  - FALL [None]
  - FEELING ABNORMAL [None]
  - FEELING COLD [None]
  - HEADACHE [None]
  - HEMIPLEGIA [None]
  - HYPERGLYCAEMIA [None]
  - HYPERHIDROSIS [None]
  - HYPOGLYCAEMIC SEIZURE [None]
  - LACERATION [None]
  - MYALGIA [None]
  - SKIN NODULE [None]
  - THINKING ABNORMAL [None]
